FAERS Safety Report 17926520 (Version 1)
Quarter: 2020Q2

REPORT INFORMATION
  Report Type: Spontaneous
  Country: ES (occurrence: ES)
  Receive Date: 20200623
  Receipt Date: 20200623
  Transmission Date: 20200714
  Serious: Yes (Other)
  Sender: FDA-Public Use
  Company Number: ES-ROCHE-2624288

PATIENT
  Age: 74 Year
  Sex: Male

DRUGS (2)
  1. ROACTEMRA [Suspect]
     Active Substance: TOCILIZUMAB
     Indication: SYSTEMIC INFLAMMATORY RESPONSE SYNDROME
     Route: 042
     Dates: start: 20200321, end: 20200321
  2. ROACTEMRA [Suspect]
     Active Substance: TOCILIZUMAB
     Indication: COVID-19
     Route: 042
     Dates: start: 20200318, end: 20200319

REACTIONS (2)
  - Hypofibrinogenaemia [Recovered/Resolved]
  - Anaemia [Not Recovered/Not Resolved]

NARRATIVE: CASE EVENT DATE: 20200327
